FAERS Safety Report 22673081 (Version 15)
Quarter: 2023Q4

REPORT INFORMATION
  Report Type: Report from Study
  Country: KR (occurrence: KR)
  Receive Date: 20230705
  Receipt Date: 20231204
  Transmission Date: 20240110
  Serious: Yes (Life-Threatening, Hospitalization)
  Sender: FDA-Public Use
  Company Number: KR-ELI_LILLY_AND_COMPANY-KR202306006183

PATIENT
  Age: 64 Year
  Sex: Female
  Weight: 55.3 kg

DRUGS (94)
  1. ABEMACICLIB [Suspect]
     Active Substance: ABEMACICLIB
     Indication: Ovarian epithelial cancer
     Dosage: 150 MG, BID
     Route: 048
     Dates: start: 20230509, end: 20230521
  2. ABEMACICLIB [Suspect]
     Active Substance: ABEMACICLIB
     Dosage: 300 MG, BID
     Route: 048
     Dates: start: 20230509, end: 20230521
  3. ABEMACICLIB [Suspect]
     Active Substance: ABEMACICLIB
     Dosage: 50 MG, BID
     Route: 048
     Dates: start: 20230614
  4. GIREDESTRANT [Concomitant]
     Active Substance: GIREDESTRANT
     Indication: Ovarian epithelial cancer
     Dosage: 30 MG, DAILY
     Route: 048
     Dates: start: 20230509, end: 20230617
  5. VALSAONE [Concomitant]
     Indication: Hypertension
     Dosage: 80 MG, DAILY
     Route: 048
     Dates: start: 20230630, end: 20230701
  6. VALSAONE [Concomitant]
     Dosage: 80 MG, DAILY
     Route: 048
     Dates: start: 20230705, end: 20230705
  7. VALSAONE [Concomitant]
     Dosage: 80 MG, DAILY
     Route: 048
     Dates: start: 20191213, end: 20230620
  8. VALSAONE [Concomitant]
     Dosage: 80 MG, DAILY
     Route: 048
     Dates: start: 20230716, end: 20230720
  9. VALSAONE [Concomitant]
     Dosage: 80 MG, DAILY
     Route: 048
     Dates: start: 20230703, end: 20230703
  10. VALSAONE [Concomitant]
     Dosage: 80 MG, DAILY
     Route: 048
     Dates: start: 20230711, end: 20230711
  11. FLUTICASONE FUROATE\VILANTEROL TRIFENATATE [Concomitant]
     Active Substance: FLUTICASONE FUROATE\VILANTEROL TRIFENATATE
     Indication: Asthma
     Dosage: 1 INHALATION, DAILY
     Route: 055
     Dates: start: 20210914
  12. NORZYME [Concomitant]
     Indication: Dyspepsia
     Dosage: 457.7 MG, PRN
     Route: 048
     Dates: start: 20230411, end: 20230620
  13. DULACKHAN EASY [Concomitant]
     Indication: Constipation
     Dosage: 15 ML, PRN
     Route: 048
     Dates: start: 20230411, end: 20230620
  14. MAGNESIUM HYDROXIDE [Concomitant]
     Active Substance: MAGNESIUM HYDROXIDE
     Indication: Constipation
     Dosage: 250 MG, PRN
     Route: 048
     Dates: start: 20230411, end: 20230608
  15. MAGNESIUM HYDROXIDE [Concomitant]
     Active Substance: MAGNESIUM HYDROXIDE
     Dosage: 500 MG, PRN
     Route: 048
     Dates: start: 20230609, end: 20230620
  16. MAGNESIUM HYDROXIDE [Concomitant]
     Active Substance: MAGNESIUM HYDROXIDE
     Dosage: 1 DOSAGE FORM, BID
     Route: 048
     Dates: start: 20230622, end: 20230720
  17. ULTRACET [Concomitant]
     Active Substance: ACETAMINOPHEN\TRAMADOL HYDROCHLORIDE
     Indication: Abdominal pain
     Dosage: 1 TABLET, PRN
     Route: 048
     Dates: start: 20230411, end: 20230501
  18. ULTRACET [Concomitant]
     Active Substance: ACETAMINOPHEN\TRAMADOL HYDROCHLORIDE
     Dosage: 1 DOSAGE FORM
     Route: 048
     Dates: start: 20230720
  19. BEAROBAN [Concomitant]
     Indication: Erythema multiforme
     Dosage: 10 G, DAILY
     Route: 061
     Dates: start: 20230427, end: 20230512
  20. BEAROBAN [Concomitant]
     Indication: Skin abrasion
     Dosage: 10 G, DAILY
     Route: 062
     Dates: start: 20230704
  21. XYZAL [Concomitant]
     Active Substance: LEVOCETIRIZINE DIHYDROCHLORIDE
     Indication: Erythema multiforme
     Dosage: 5 MG, DAILY
     Route: 048
     Dates: start: 20230427, end: 20230512
  22. OXATIN [Concomitant]
     Indication: Erythema multiforme
     Dosage: 30 MG, DAILY
     Route: 048
     Dates: start: 20230427, end: 20230512
  23. METHYLON [METHYLPREDNISOLONE] [Concomitant]
     Indication: Erythema multiforme
     Dosage: 12 MG, DAILY
     Route: 048
     Dates: start: 20230427, end: 20230503
  24. METHYLON [METHYLPREDNISOLONE] [Concomitant]
     Dosage: 6 MG, DAILY
     Route: 048
     Dates: start: 20230504, end: 20230512
  25. LAFUTIDINE [Concomitant]
     Active Substance: LAFUTIDINE
     Indication: Dyspepsia
     Dosage: 10 MG, DAILY
     Route: 048
     Dates: start: 20230427, end: 20230512
  26. DESOWEN [Concomitant]
     Active Substance: DESONIDE
     Indication: Erythema multiforme
     Dosage: UNK, BID
     Route: 061
     Dates: start: 20230427, end: 20230512
  27. DESOWEN [Concomitant]
     Active Substance: DESONIDE
     Indication: Skin abrasion
     Dosage: 120 ML, BID
     Route: 062
     Dates: start: 20230704
  28. HYDROXYZINE HYDROCHLORIDE [Concomitant]
     Active Substance: HYDROXYZINE HYDROCHLORIDE
     Indication: Erythema multiforme
     Dosage: 10 MG, DAILY
     Route: 048
     Dates: start: 20230427, end: 20230512
  29. KYTRIL [Concomitant]
     Active Substance: GRANISETRON HYDROCHLORIDE
     Indication: Nausea
     Dosage: 1 MG, PRN
     Route: 048
     Dates: start: 20230509, end: 20230522
  30. KYTRIL [Concomitant]
     Active Substance: GRANISETRON HYDROCHLORIDE
     Dosage: 1 MG, DAILY
     Route: 042
     Dates: start: 20230605, end: 20230605
  31. KYTRIL [Concomitant]
     Active Substance: GRANISETRON HYDROCHLORIDE
     Dosage: 1 MG, BID
     Route: 048
     Dates: start: 20230610, end: 20230618
  32. KYTRIL [Concomitant]
     Active Substance: GRANISETRON HYDROCHLORIDE
     Dosage: 1 MG, DAILY
     Route: 042
     Dates: start: 20230608, end: 20230608
  33. KYTRIL [Concomitant]
     Active Substance: GRANISETRON HYDROCHLORIDE
     Dosage: 1 MG, DAILY
     Route: 042
     Dates: start: 20230620, end: 20230620
  34. MACPERAN [METOCLOPRAMIDE] [Concomitant]
     Indication: Nausea
     Dosage: 5 MG, TID
     Route: 048
     Dates: start: 20230510, end: 20230620
  35. MACPERAN [METOCLOPRAMIDE] [Concomitant]
     Dosage: 10 MG, DAILY
     Route: 042
     Dates: start: 20230606, end: 20230606
  36. MACPERAN [METOCLOPRAMIDE] [Concomitant]
     Dosage: 10 MG, DAILY
     Route: 042
     Dates: start: 20230618, end: 20230618
  37. MACPERAN [METOCLOPRAMIDE] [Concomitant]
     Dosage: UNK, UNKNOWN
     Route: 065
     Dates: start: 20230625, end: 20230625
  38. TANTUM [BENZYDAMINE HYDROCHLORIDE] [Concomitant]
     Indication: Product used for unknown indication
     Dosage: 100 ML, PRN
     Route: 061
     Dates: start: 20230527, end: 20230620
  39. SODIUM BICARBONATE [Concomitant]
     Active Substance: SODIUM BICARBONATE
     Indication: Product used for unknown indication
     Dosage: 100 ML, PRN
     Route: 061
     Dates: start: 20230527, end: 20230620
  40. CALCIUM CHLORIDE [Concomitant]
     Active Substance: CALCIUM CHLORIDE
     Indication: Hypocalcaemia
     Dosage: 600 MG, DAILY
     Route: 042
     Dates: start: 20230527
  41. ALBUMIN HUMAN [Concomitant]
     Active Substance: ALBUMIN HUMAN
     Indication: Hypoalbuminaemia
     Dosage: 100 ML, UNKNOWN
     Route: 042
     Dates: start: 20230527, end: 20230528
  42. ALBUMIN HUMAN [Concomitant]
     Active Substance: ALBUMIN HUMAN
     Dosage: 100 ML, DAILY
     Route: 042
     Dates: start: 20230602, end: 20230602
  43. ALBUMIN HUMAN [Concomitant]
     Active Substance: ALBUMIN HUMAN
     Dosage: 100 ML, DAILY
     Route: 042
     Dates: start: 20230722, end: 20230722
  44. ALBUMIN HUMAN [Concomitant]
     Active Substance: ALBUMIN HUMAN
     Dosage: 100 ML, DAILY
     Route: 042
     Dates: start: 20230704, end: 20230706
  45. ALBUMIN HUMAN [Concomitant]
     Active Substance: ALBUMIN HUMAN
     Dosage: 100 ML, DAILY
     Route: 042
     Dates: start: 20230710, end: 20230710
  46. ALBUMIN HUMAN [Concomitant]
     Active Substance: ALBUMIN HUMAN
     Dosage: 100 ML, DAILY
     Route: 042
     Dates: start: 20230714, end: 20230714
  47. ALBUMIN HUMAN [Concomitant]
     Active Substance: ALBUMIN HUMAN
     Dosage: 100 ML, DAILY
     Route: 042
     Dates: start: 20230706, end: 20230706
  48. ALBUMIN HUMAN [Concomitant]
     Active Substance: ALBUMIN HUMAN
     Dosage: 100 ML, DAILY
     Route: 042
     Dates: start: 20230628, end: 20230628
  49. ALBUMIN HUMAN [Concomitant]
     Active Substance: ALBUMIN HUMAN
     Dosage: 100 ML, DAILY
     Route: 042
     Dates: start: 20230630, end: 20230630
  50. ALBUMIN HUMAN [Concomitant]
     Active Substance: ALBUMIN HUMAN
     Dosage: 100 ML, DAILY
     Route: 042
     Dates: start: 20230622, end: 20230625
  51. ALBUMIN HUMAN [Concomitant]
     Active Substance: ALBUMIN HUMAN
     Dosage: 100 ML, DAILY
     Route: 042
     Dates: start: 20230625, end: 20230625
  52. ALBUMIN HUMAN [Concomitant]
     Active Substance: ALBUMIN HUMAN
     Dosage: 100 ML, DAILY
     Route: 042
     Dates: start: 20230621, end: 20230621
  53. ALBUMIN HUMAN [Concomitant]
     Active Substance: ALBUMIN HUMAN
     Dosage: 100 ML, DAILY
     Route: 042
     Dates: start: 20230607, end: 20230607
  54. ALBUMIN HUMAN [Concomitant]
     Active Substance: ALBUMIN HUMAN
     Dosage: 100 ML, DAILY
     Route: 042
     Dates: start: 20230724, end: 20230725
  55. FERINJECT [Concomitant]
     Active Substance: FERRIC CARBOXYMALTOSE
     Indication: Anaemia
     Dosage: 500 MG, UNKNOWN
     Route: 042
     Dates: start: 20230528
  56. PENIRAMIN [Concomitant]
     Indication: Product used for unknown indication
     Dosage: 4 MG, DAILY
     Route: 042
     Dates: start: 20230530, end: 20230531
  57. AMOBUROFEN [Concomitant]
     Indication: Abdominal pain
     Dosage: 400 MG, DAILY
     Route: 042
     Dates: start: 20230604, end: 20230604
  58. AMOBUROFEN [Concomitant]
     Dosage: 400 MG, DAILY
     Route: 042
     Dates: start: 20230625, end: 20230625
  59. AMOBUROFEN [Concomitant]
     Dosage: 400 MG, DAILY
     Route: 042
     Dates: start: 20230703, end: 20230703
  60. AMOBUROFEN [Concomitant]
     Dosage: 400 MG, DAILY
     Route: 042
     Dates: start: 20230722, end: 20230722
  61. AMOBUROFEN [Concomitant]
     Dosage: 400 MG, DAILY
     Route: 042
     Dates: start: 20230722, end: 20230723
  62. MEPERIDINE [Concomitant]
     Active Substance: MEPERIDINE
     Indication: Product used for unknown indication
     Dosage: 25 MG, DAILY
     Route: 030
     Dates: start: 20230605, end: 20230605
  63. TRAST [Concomitant]
     Indication: Arthralgia
     Dosage: 1 OTHER, DAILY
     Route: 062
     Dates: start: 20230605
  64. MEDILAC DS [Concomitant]
     Indication: Constipation
     Dosage: 1 DOSAGE FORM, DAILY
     Route: 048
     Dates: start: 20230606, end: 20230607
  65. MEDILAC DS [Concomitant]
     Dosage: 1 DOSAGE FORM, TID
     Route: 048
     Dates: start: 20230608, end: 20230610
  66. OXYCODONE HYDROCHLORIDE [Concomitant]
     Active Substance: OXYCODONE HYDROCHLORIDE
     Indication: Abdominal pain
     Dosage: 2 MG, DAILY
     Route: 042
     Dates: start: 20230608, end: 20230608
  67. OXYCODONE HYDROCHLORIDE [Concomitant]
     Active Substance: OXYCODONE HYDROCHLORIDE
     Indication: Non-cardiac chest pain
     Dosage: 2 MG, DAILY
     Route: 042
     Dates: start: 20230721, end: 20230722
  68. OXYCODONE HYDROCHLORIDE [Concomitant]
     Active Substance: OXYCODONE HYDROCHLORIDE
     Indication: Pleural effusion
     Dosage: 2 MG, DAILY
     Route: 042
     Dates: start: 20230724, end: 20230724
  69. OXYCODONE HYDROCHLORIDE [Concomitant]
     Active Substance: OXYCODONE HYDROCHLORIDE
     Dosage: 2 MG, DAILY
     Route: 042
     Dates: start: 20230711, end: 20230711
  70. OXYCODONE HYDROCHLORIDE [Concomitant]
     Active Substance: OXYCODONE HYDROCHLORIDE
     Dosage: 2 MG, DAILY
     Route: 042
     Dates: start: 20230709, end: 20230709
  71. OXYCODONE HYDROCHLORIDE [Concomitant]
     Active Substance: OXYCODONE HYDROCHLORIDE
     Dosage: 2 MG, DAILY
     Route: 042
     Dates: start: 20230706, end: 20230707
  72. OXYCODONE HYDROCHLORIDE [Concomitant]
     Active Substance: OXYCODONE HYDROCHLORIDE
     Dosage: 2 MG, DAILY
     Route: 042
     Dates: start: 20230630, end: 20230630
  73. OXYCODONE HYDROCHLORIDE [Concomitant]
     Active Substance: OXYCODONE HYDROCHLORIDE
     Dosage: 2 MG,2 IN 1 SEC
     Route: 042
     Dates: start: 20230701, end: 20230701
  74. OXYCODONE HYDROCHLORIDE [Concomitant]
     Active Substance: OXYCODONE HYDROCHLORIDE
     Dosage: 2 MG, DAILY
     Route: 042
     Dates: start: 20230704, end: 20230704
  75. OXYCODONE HYDROCHLORIDE [Concomitant]
     Active Substance: OXYCODONE HYDROCHLORIDE
     Dosage: 2 MG, DAILY
     Route: 042
     Dates: start: 20230624, end: 20230624
  76. OXYCODONE HYDROCHLORIDE [Concomitant]
     Active Substance: OXYCODONE HYDROCHLORIDE
     Dosage: 2 MG, DAILY
     Route: 042
     Dates: start: 20230620, end: 20230620
  77. OXYCODONE HYDROCHLORIDE [Concomitant]
     Active Substance: OXYCODONE HYDROCHLORIDE
     Dosage: 2 MG, DAILY
     Route: 042
     Dates: start: 20230622, end: 20230622
  78. OXYCODONE HYDROCHLORIDE [Concomitant]
     Active Substance: OXYCODONE HYDROCHLORIDE
     Dosage: 2 MG, DAILY
     Route: 042
     Dates: start: 20230721, end: 20230721
  79. OXYCODONE HYDROCHLORIDE [Concomitant]
     Active Substance: OXYCODONE HYDROCHLORIDE
     Dosage: 2 MG, DAILY
     Route: 042
     Dates: start: 20230724, end: 20230725
  80. PLASMA SOLUTION A [Concomitant]
     Indication: Hypotension
     Dosage: 300 ML, DAILY
     Route: 042
     Dates: start: 20230609, end: 20230609
  81. PLASMA SOLUTION A [Concomitant]
     Dosage: 1000 ML, UNKNOWN
     Route: 042
     Dates: start: 20230618, end: 20230618
  82. ACETYLCYSTEINE [Concomitant]
     Active Substance: ACETYLCYSTEINE
     Indication: Cough
     Dosage: 600 MG, DAILY
     Route: 042
     Dates: start: 20230625, end: 20230625
  83. ACETYLCYSTEINE [Concomitant]
     Active Substance: ACETYLCYSTEINE
     Dosage: 600 MG, TID
     Route: 042
     Dates: start: 20230625, end: 20230720
  84. ACETYLCYSTEINE [Concomitant]
     Active Substance: ACETYLCYSTEINE
     Dosage: 600 MG, DAILY
     Route: 042
     Dates: start: 20230721
  85. NEXIUM I.V. [Concomitant]
     Active Substance: ESOMEPRAZOLE SODIUM
     Indication: Dyspepsia
     Dosage: 100 MG, BID
     Route: 042
     Dates: start: 20230625, end: 20230720
  86. NEXIUM I.V. [Concomitant]
     Active Substance: ESOMEPRAZOLE SODIUM
     Dosage: 100 MG, BID
     Route: 042
     Dates: start: 20230721
  87. URSODIOL [Concomitant]
     Active Substance: URSODIOL
     Indication: Aspartate aminotransferase increased
     Dosage: 100 MG, TID
     Route: 048
     Dates: start: 20230623, end: 20230624
  88. GLYCERIN [Concomitant]
     Active Substance: GLYCERIN
     Indication: Constipation
     Dosage: 30 ML, DAILY
     Route: 054
     Dates: start: 20230625, end: 20230625
  89. BEVACIZUMAB [Concomitant]
     Active Substance: BEVACIZUMAB
     Indication: Neoplasm malignant
     Dosage: 472.5 MG, EVERY THREE WEEKS
     Route: 042
     Dates: start: 20230130, end: 20230808
  90. BEVACIZUMAB [Concomitant]
     Active Substance: BEVACIZUMAB
     Dosage: 480 MG, UNKNOWN
     Route: 042
     Dates: start: 20230130, end: 20230808
  91. BEVACIZUMAB [Concomitant]
     Active Substance: BEVACIZUMAB
     Dosage: 487.5 MG, UNKNOWN
     Route: 042
     Dates: start: 20230130, end: 20230808
  92. AMMONIUM CHLORIDE;CHLORPHENAMINE;DIHYDROCODEI [Concomitant]
     Indication: Cough
     Dosage: 20 ML, TID
     Route: 048
     Dates: start: 20230709, end: 20230710
  93. AMMONIUM CHLORIDE;CHLORPHENAMINE;DIHYDROCODEI [Concomitant]
     Dosage: 20 ML, DAILY
     Route: 048
  94. GODEX [ADENINE HYDROCHLORIDE;CARNITINE OROTAT [Concomitant]
     Indication: Aspartate aminotransferase increased
     Dosage: 1 DOSAGE FORM, TID
     Route: 048
     Dates: start: 20230623, end: 20230624

REACTIONS (6)
  - Neutrophil count decreased [Recovered/Resolved]
  - Platelet count decreased [Recovered/Resolved]
  - Ileus [Recovered/Resolved]
  - Pleural effusion [Not Recovered/Not Resolved]
  - Haematological infection [Recovered/Resolved]
  - Ileus [Not Recovered/Not Resolved]

NARRATIVE: CASE EVENT DATE: 20230516
